FAERS Safety Report 21424797 (Version 6)
Quarter: 2023Q1

REPORT INFORMATION
  Report Type: Spontaneous
  Country: CA (occurrence: CA)
  Receive Date: 20221008
  Receipt Date: 20230316
  Transmission Date: 20230417
  Serious: Yes (Hospitalization, Other)
  Sender: FDA-Public Use
  Company Number: CA-CELLTRION INC.-2022CA013604

PATIENT

DRUGS (3)
  1. INFLECTRA [Suspect]
     Active Substance: INFLIXIMAB-DYYB
     Indication: Crohn^s disease
     Dosage: 5 MG/KG, INDUCTION WEEKS 0, 2 AND 6 THEN MAINTENANCE EVERY 8 WEEKS
     Route: 042
     Dates: start: 20220616, end: 20220706
  2. INFLECTRA [Suspect]
     Active Substance: INFLIXIMAB-DYYB
     Dosage: 5 MG/KG, INDUCTION WEEKS 0, 2 AND 6 THEN MAINTENANCE EVERY 8 WEEKS
     Route: 042
     Dates: start: 20220706
  3. INFLECTRA [Suspect]
     Active Substance: INFLIXIMAB-DYYB
     Dosage: 5 MG/KG, RE-INDUCTION WEEKS 0, 2 AND 6 THEN Q8WEEKS MAINTENANCE
     Route: 042

REACTIONS (15)
  - Diarrhoea haemorrhagic [Unknown]
  - C-reactive protein increased [Unknown]
  - Pain [Unknown]
  - Clostridium difficile infection [Recovered/Resolved]
  - Condition aggravated [Unknown]
  - Herpes zoster [Recovered/Resolved]
  - Urinary tract infection [Recovered/Resolved]
  - COVID-19 [Unknown]
  - Abscess [Not Recovered/Not Resolved]
  - Pyrexia [Not Recovered/Not Resolved]
  - Asthenia [Recovered/Resolved]
  - Anxiety [Unknown]
  - Diarrhoea [Unknown]
  - Off label use [Unknown]
  - Incorrect dose administered [Unknown]

NARRATIVE: CASE EVENT DATE: 20220101
